FAERS Safety Report 6445700-7 (Version None)
Quarter: 2009Q4

REPORT INFORMATION
  Report Type: 
  Country: None (occurrence: None)
  Receive Date: 20091118
  Receipt Date: 20091118
  Transmission Date: 20100525
  Serious: No
  Sender: FDA-Public Use
  Company Number: None

PATIENT
  Age: 71 Year
  Sex: Female

DRUGS (1)
  1. LEVAQUIN [Suspect]
     Indication: URETHRAL PAIN
     Dosage: 500 MG ONCE IV CONTINUOUS
     Route: 042
     Dates: start: 20091116, end: 20091116

REACTIONS (2)
  - INFUSION SITE ERYTHEMA [None]
  - INFUSION SITE REACTION [None]
